FAERS Safety Report 9443673 (Version 1)
Quarter: 2013Q3

REPORT INFORMATION
  Report Type: Spontaneous
  Country: US (occurrence: US)
  Receive Date: 20130806
  Receipt Date: 20130806
  Transmission Date: 20140515
  Serious: Yes (Other)
  Sender: FDA-Public Use
  Company Number: PHHY2013US081491

PATIENT
  Age: 64 Year
  Sex: Female

DRUGS (5)
  1. KETAMINE [Suspect]
     Dosage: 0.5 MG/KG, UNK
     Route: 042
  2. FLUVOXAMINE [Interacting]
  3. RILUZOLE [Interacting]
  4. ACETYLCYSTEINE [Interacting]
  5. ALPRAZOLAM [Interacting]

REACTIONS (13)
  - Suicidal ideation [Recovering/Resolving]
  - Depersonalisation [Unknown]
  - Poor quality sleep [Recovering/Resolving]
  - Depressed mood [Unknown]
  - Asthenia [Recovering/Resolving]
  - Fear [Unknown]
  - Dysphoria [Unknown]
  - Drug interaction [Unknown]
  - Anxiety [Unknown]
  - Paraesthesia [Unknown]
  - Paraesthesia oral [Unknown]
  - Nausea [Unknown]
  - Drug effect incomplete [Unknown]
